FAERS Safety Report 8849279 (Version 2)
Quarter: 2013Q3

REPORT INFORMATION
  Report Type: Report from Study
  Country: JP (occurrence: JP)
  Receive Date: 20121019
  Receipt Date: 20130708
  Transmission Date: 20140515
  Serious: Yes (Other)
  Sender: FDA-Public Use
  Company Number: JP-009507513-1210JPN007692

PATIENT
  Age: 61 Year
  Sex: Female
  Weight: 50 kg

DRUGS (5)
  1. PEGINTRON [Suspect]
     Indication: HEPATITIS C
     Dosage: 1.5 MICROGRAM PER KILOGRAM, QW
     Route: 058
     Dates: start: 20120807, end: 20120813
  2. PEGINTRON [Suspect]
     Dosage: 1.13 MICROGRAM PER KILOGRAM, QW
     Route: 058
     Dates: start: 20120814
  3. REBETOL [Suspect]
     Indication: HEPATITIS C
     Dosage: 400 MG, QD
     Route: 048
     Dates: start: 20120807, end: 20120903
  4. REBETOL [Suspect]
     Dosage: 200 MG, QD
     Route: 048
     Dates: start: 20120904
  5. TELAVIC [Suspect]
     Indication: HEPATITIS C
     Dosage: 1500 MG, QD
     Route: 048
     Dates: start: 20120807

REACTIONS (4)
  - Hyperuricaemia [Recovering/Resolving]
  - Anaemia [Recovering/Resolving]
  - Rash [Recovering/Resolving]
  - White blood cell count decreased [Not Recovered/Not Resolved]
